FAERS Safety Report 16596417 (Version 1)
Quarter: 2019Q3

REPORT INFORMATION
  Report Type: Spontaneous
  Country: DE (occurrence: DE)
  Receive Date: 20190719
  Receipt Date: 20190719
  Transmission Date: 20191004
  Serious: Yes (Death, Life-Threatening, Hospitalization)
  Sender: FDA-Public Use
  Company Number: DE-TEVA-2019-DE-1077997

PATIENT
  Age: 75 Year
  Sex: Female
  Weight: 67 kg

DRUGS (8)
  1. OPIUM. [Concomitant]
     Active Substance: OPIUM
     Dosage: NK G, IF NECESSARY, DROPS
     Route: 048
  2. LOPERAMID [Concomitant]
     Active Substance: LOPERAMIDE
     Dosage: 2 MG, IF NECESSARY, TABLETS
     Route: 048
  3. DOMPERIDON [Concomitant]
     Active Substance: DOMPERIDONE
     Dosage: 10 MG, IF NECESSARY, TABLETS
     Route: 048
  4. METOCLOPRAMID [Concomitant]
     Active Substance: METOCLOPRAMIDE
     Dosage: 10 MG, IF NECESSARY, DROPS
     Route: 048
  5. TORASEMID [Concomitant]
     Active Substance: TORSEMIDE
     Dosage: 10 MG, 1-0-0-0,
     Route: 048
  6. GEMCITABINE. [Suspect]
     Active Substance: GEMCITABINE
     Dosage: 1SCHEMA, MOST RECENTLY ON 06.03.18, SOLUTION FOR INJECTION / INFUSION000 MG / M2, ACCORDING TO
     Route: 042
  7. KREON 25000 [Concomitant]
     Active Substance: PANCRELIPASE
     Dosage: 25000 IE, 2-2-2-0,
     Route: 048
  8. ONDANSETRON [Concomitant]
     Active Substance: ONDANSETRON
     Dosage: 8 MG, IF NECESSARY, TABLETS
     Route: 048

REACTIONS (4)
  - Arrhythmia [Unknown]
  - General physical health deterioration [Unknown]
  - Dehydration [Unknown]
  - Tachycardia [Unknown]
